FAERS Safety Report 7278896-8 (Version None)
Quarter: 2010Q4

REPORT INFORMATION
  Report Type: 
  Country: None (occurrence: None)
  Receive Date: 20101206
  Receipt Date: 20101101
  Transmission Date: 20110411
  Serious: Yes (Other)
  Sender: FDA-Public Use
  Company Number: 2010SP058096

PATIENT
  Age: 43 Year
  Sex: Female

DRUGS (2)
  1. SAPHRIS [Suspect]
     Indication: BIPOLAR DISORDER
     Dosage: 5 MG; ONCE; SL
     Route: 060
     Dates: start: 20101018, end: 20101019
  2. CTALOPRAM [Concomitant]

REACTIONS (3)
  - DYSKINESIA [None]
  - SWOLLEN TONGUE [None]
  - VISION BLURRED [None]
